FAERS Safety Report 13970179 (Version 2)
Quarter: 2017Q3

REPORT INFORMATION
  Report Type: Spontaneous
  Country: KR (occurrence: KR)
  Receive Date: 20170914
  Receipt Date: 20170914
  Transmission Date: 20171128
  Serious: Yes (Hospitalization)
  Sender: FDA-Public Use
  Company Number: PHHY2016KR075997

PATIENT
  Age: 75 Year
  Sex: Female

DRUGS (5)
  1. QUETIAPINE. [Suspect]
     Active Substance: QUETIAPINE
     Indication: PARKINSON^S DISEASE
     Dosage: 12.5 MG, QHS
     Route: 065
  2. ROPINIROLE. [Suspect]
     Active Substance: ROPINIROLE
     Indication: PARKINSON^S DISEASE
     Dosage: 2 MG, QD
     Route: 065
  3. ENTACAPONE-LEVODOPA-CARBIDOPA [Suspect]
     Active Substance: CARBIDOPA\ENTACAPONE\LEVODOPA
     Indication: PARKINSON^S DISEASE
     Dosage: 150/37.5/200 MG TWICE A DAY
     Route: 065
  4. QUETIAPINE. [Suspect]
     Active Substance: QUETIAPINE
     Indication: HALLUCINATION
     Dosage: 100 MG, UNK
     Route: 065
  5. FLORBETABEN (18F) [Suspect]
     Active Substance: FLORBETABEN F-18
     Indication: PRODUCT USED FOR UNKNOWN INDICATION
     Route: 065

REACTIONS (7)
  - Apathy [Unknown]
  - Sedation complication [None]
  - Hallucination, visual [Recovering/Resolving]
  - Depression [Unknown]
  - Anxiety [Recovered/Resolved]
  - Abnormal behaviour [Unknown]
  - Sleep disorder [Unknown]
